FAERS Safety Report 5279333-5 (Version None)
Quarter: 2007Q1

REPORT INFORMATION
  Report Type: 
  Country: None (occurrence: None)
  Receive Date: 20070328
  Receipt Date: 20060323
  Transmission Date: 20070707
  Serious: No
  Sender: FDA-Public Use
  Company Number: US-AMGEN-US173587

PATIENT
  Sex: Female
  Weight: 91.3 kg

DRUGS (3)
  1. NEULASTA [Suspect]
     Indication: CHEMOTHERAPY
     Route: 058
     Dates: start: 20050521, end: 20050709
  2. CYTOXAN [Concomitant]
     Route: 065
  3. ADRIAMYCIN PFS [Concomitant]
     Route: 065

REACTIONS (5)
  - BONE PAIN [None]
  - DIARRHOEA [None]
  - HEADACHE [None]
  - NAUSEA [None]
  - POLYARTHRITIS [None]
